FAERS Safety Report 12189578 (Version 1)
Quarter: 2016Q1

REPORT INFORMATION
  Report Type: Spontaneous
  Country: US (occurrence: US)
  Receive Date: 20160318
  Receipt Date: 20160318
  Transmission Date: 20160526
  Serious: No
  Sender: FDA-Public Use
  Company Number: US-009507513-1603USA007705

PATIENT

DRUGS (2)
  1. REBETOL [Suspect]
     Active Substance: RIBAVIRIN
     Route: 048
  2. SOVALDI [Suspect]
     Active Substance: SOFOSBUVIR

REACTIONS (1)
  - Treatment failure [Not Recovered/Not Resolved]
